FAERS Safety Report 9216652 (Version 4)
Quarter: 2014Q1

REPORT INFORMATION
  Report Type: Spontaneous
  Country: US (occurrence: None)
  Receive Date: 20130129
  Receipt Date: 20140226
  Transmission Date: 20141002
  Serious: Yes (Hospitalization, Other)
  Sender: FDA-Public Use
  Company Number: 2012-001272

PATIENT
  Age: 70 Year
  Sex: Female
  Weight: 62.3 kg

DRUGS (13)
  1. ACTONEL (RISEDRONATE SODIUM) TABLET, 150MG [Suspect]
     Indication: OSTEOPOROSIS
     Route: 048
     Dates: start: 20091027, end: 2010
  2. BONIVA (IBANDRONATE SODIUM) [Suspect]
     Indication: OSTEOPOROSIS
     Route: 048
     Dates: start: 20100305, end: 201007
  3. FOSAMAX (ALENDRONATE SODIUM) [Suspect]
     Indication: OSTEOPOROSIS
     Route: 048
     Dates: start: 20090615, end: 200910
  4. FOSAMAX PLUS D [Suspect]
     Indication: OSTEOPOROSIS
     Route: 048
     Dates: start: 20070326, end: 20090615
  5. VIVELLE DOT (ESTRADIOL) TRANS-THERAPEUTIC-SYSTEM [Concomitant]
  6. SYNTHROID (LEVOTHYROXINE SODIUM) [Concomitant]
  7. DIOVAN (VALSARTAN) [Concomitant]
  8. MAXZIDE (HYDROCHLOROTHIAZIDE, TRIAMTERENE) [Concomitant]
  9. ZOLPIDEM (ZOLPIDEM) [Concomitant]
  10. CYMBALTA [Concomitant]
  11. DICLOFFENAC (DICLOFENAC) [Concomitant]
  12. MELOXICAM (MELOXICAM) [Concomitant]
  13. LIDODERM (LIDOCAINE) [Concomitant]

REACTIONS (10)
  - Fall [None]
  - Femur fracture [None]
  - Fracture displacement [None]
  - Pathological fracture [None]
  - Bone disorder [None]
  - Low turnover osteopathy [None]
  - Fracture delayed union [None]
  - Stress fracture [None]
  - Pain in extremity [None]
  - Osteogenesis imperfecta [None]
